FAERS Safety Report 7361835-9 (Version None)
Quarter: 2011Q1

REPORT INFORMATION
  Report Type: 
  Country: None (occurrence: None)
  Receive Date: 20110318
  Receipt Date: 20110308
  Transmission Date: 20110831
  Serious: Yes (Hospitalization, Other)
  Sender: FDA-Public Use
  Company Number: US-JNJFOC-20081200820

PATIENT
  Sex: Male
  Weight: 36.9 kg

DRUGS (25)
  1. REMICADE [Suspect]
     Dosage: DOSE INCREASED TO 10 MG/KG; 3RD DOSE
  2. REMICADE [Suspect]
     Dosage: DOSE DECREASED TO 5 MG/KG (200 MG) FROM 10 MG/KG.
  3. M.V.I. [Concomitant]
  4. ACETAMINOPHEN [Concomitant]
  5. NORTRIPTYLINE [Concomitant]
  6. LEXAPRO [Concomitant]
  7. REMICADE [Suspect]
     Indication: INFLAMMATORY BOWEL DISEASE
     Dosage: 10 MG/KG
  8. REMICADE [Suspect]
     Dosage: 5MG/KG; 2ND DOSE
  9. FOLIC ACID [Concomitant]
  10. CULTURELLE [Concomitant]
  11. PREVACID [Concomitant]
  12. LACTOBACILLUS [Concomitant]
  13. ZANTAC [Concomitant]
  14. SACCHRAMISES BALLARDII [Concomitant]
  15. OMNICEF [Concomitant]
  16. ENSURE [Concomitant]
  17. REMICADE [Suspect]
     Dosage: TOTAL 12 DOSES
  18. MERCAPTOPURINE [Concomitant]
  19. BENADRYL [Concomitant]
  20. COUMADIN [Concomitant]
  21. ALLOPURINOL [Concomitant]
  22. LACTOSE [Concomitant]
  23. ZOFRAN [Concomitant]
  24. NALTREXONE [Concomitant]
  25. IRON [Concomitant]

REACTIONS (11)
  - INFLAMMATORY BOWEL DISEASE [None]
  - GIARDIASIS [None]
  - CYTOMEGALOVIRUS VIRAEMIA [None]
  - ANAEMIA [None]
  - VENOUS THROMBOSIS [None]
  - CYTOMEGALOVIRUS COLITIS [None]
  - SINUSITIS [None]
  - STAPHYLOCOCCAL INFECTION [None]
  - THROMBOSIS [None]
  - JOINT EFFUSION [None]
  - DIZZINESS [None]
